FAERS Safety Report 15236915 (Version 3)
Quarter: 2020Q4

REPORT INFORMATION
  Report Type: Spontaneous
  Country: US (occurrence: US)
  Receive Date: 20180803
  Receipt Date: 20201030
  Transmission Date: 20210113
  Serious: No
  Sender: FDA-Public Use
  Company Number: US-SA-2018SA137902

PATIENT

DRUGS (2)
  1. DUPIXENT [Suspect]
     Active Substance: DUPILUMAB
     Indication: DERMATITIS ATOPIC
     Dosage: 300 MG,QOW
     Route: 058
     Dates: start: 20180307
  2. DUPIXENT [Suspect]
     Active Substance: DUPILUMAB
     Dosage: 300 MG, QOW
     Route: 058
     Dates: start: 20180318

REACTIONS (10)
  - Dermatitis [Unknown]
  - Pruritus [Recovered/Resolved]
  - Therapeutic product effect decreased [Unknown]
  - Eczema [Recovered/Resolved]
  - Pain [Recovered/Resolved]
  - Skin discolouration [Unknown]
  - Rash [Unknown]
  - Scratch [Unknown]
  - Burning sensation [Recovered/Resolved]
  - Blood blister [Unknown]

NARRATIVE: CASE EVENT DATE: 20181004
